FAERS Safety Report 18871546 (Version 2)
Quarter: 2021Q2

REPORT INFORMATION
  Report Type: Spontaneous
  Country: DE (occurrence: DE)
  Receive Date: 20210210
  Receipt Date: 20210517
  Transmission Date: 20210717
  Serious: Yes (Hospitalization, Other)
  Sender: FDA-Public Use
  Company Number: NVSC2021DE028287

PATIENT
  Sex: Female

DRUGS (1)
  1. COSENTYX [Suspect]
     Active Substance: SECUKINUMAB
     Indication: PSORIATIC ARTHROPATHY
     Dosage: 300 MG, QMO
     Route: 065
     Dates: start: 201908

REACTIONS (6)
  - Influenza [Unknown]
  - Infection [Unknown]
  - Diabetes mellitus [Unknown]
  - Thyroid disorder [Unknown]
  - Genital infection fungal [Unknown]
  - Ear pain [Unknown]

NARRATIVE: CASE EVENT DATE: 202001
